FAERS Safety Report 21135029 (Version 3)
Quarter: 2022Q3

REPORT INFORMATION
  Report Type: Report from Study
  Country: CH (occurrence: None)
  Receive Date: 20220727
  Receipt Date: 20220817
  Transmission Date: 20221027
  Serious: Yes (Hospitalization)
  Sender: FDA-Public Use
  Company Number: CH-ROCHE-3145380

PATIENT
  Age: 73 Year
  Sex: Male

DRUGS (5)
  1. ATEZOLIZUMAB [Suspect]
     Active Substance: ATEZOLIZUMAB
     Indication: Non-small cell lung cancer
     Dosage: 15/JUN/2022 WAS LAST DATE OF DOSE GEMCITABIN PRIOR TO AE
     Route: 041
     Dates: start: 20220211
  2. ATEZOLIZUMAB [Suspect]
     Active Substance: ATEZOLIZUMAB
     Indication: Mesothelioma
  3. GEMCITABINE [Suspect]
     Active Substance: GEMCITABINE
     Indication: Non-small cell lung cancer
     Dosage: ON DAY 1 AND DAY 8 OF EACH CYCLE (EVERY 3 WEEKS), 20/JUN/2022 WAS LAST DATE OF DOSE ATEZOLIZUMAB PRI
     Route: 042
     Dates: start: 20220211
  4. GEMCITABINE [Suspect]
     Active Substance: GEMCITABINE
     Indication: Mesothelioma
  5. AMOXICILLIN\CLAVULANATE POTASSIUM [Concomitant]
     Active Substance: AMOXICILLIN\CLAVULANATE POTASSIUM

REACTIONS (1)
  - Inflammation [Recovered/Resolved with Sequelae]

NARRATIVE: CASE EVENT DATE: 20220720
